FAERS Safety Report 8093269-6 (Version None)
Quarter: 2012Q1

REPORT INFORMATION
  Report Type: 
  Country: None (occurrence: None)
  Receive Date: 20120128
  Receipt Date: 20110915
  Transmission Date: 20120608
  Serious: No
  Sender: FDA-Public Use
  Company Number: US-ABBOTT-11P-163-0730456-00

PATIENT
  Age: 41 Year
  Sex: Female

DRUGS (2)
  1. HUMIRA [Suspect]
     Indication: CROHN'S DISEASE
     Dates: start: 20110101
  2. CELEXA [Concomitant]
     Indication: DEPRESSION

REACTIONS (7)
  - RASH PRURITIC [None]
  - HYPERSENSITIVITY [None]
  - HYPERHIDROSIS [None]
  - RASH ERYTHEMATOUS [None]
  - RASH PAPULAR [None]
  - PAIN [None]
  - RASH [None]
